FAERS Safety Report 18205224 (Version 1)
Quarter: 2020Q3

REPORT INFORMATION
  Report Type: Spontaneous
  Country: US (occurrence: US)
  Receive Date: 20200828
  Receipt Date: 20200828
  Transmission Date: 20201103
  Serious: No
  Sender: FDA-Public Use
  Company Number: US-AMGEN-USASP2020138967

PATIENT
  Age: 53 Year
  Sex: Male

DRUGS (6)
  1. OMEPRAZOLE. [Concomitant]
     Active Substance: OMEPRAZOLE
     Dosage: UNK
  2. FLUOCINONIDE. [Concomitant]
     Active Substance: FLUOCINONIDE
     Dosage: UNK
  3. CLOBETASOL [Concomitant]
     Active Substance: CLOBETASOL
     Dosage: UNK
  4. OTEZLA [Suspect]
     Active Substance: APREMILAST
     Indication: PSORIASIS
     Dosage: 30 MILLIGRAM (STARTER PACK), USE AS DIRECTED ON PACKAGING
     Route: 048
     Dates: start: 20200731
  5. LOSARTAN POTASSIUM. [Concomitant]
     Active Substance: LOSARTAN POTASSIUM
     Dosage: UNK
  6. IBUPROFEN. [Concomitant]
     Active Substance: IBUPROFEN
     Dosage: UNK

REACTIONS (4)
  - Abdominal discomfort [Not Recovered/Not Resolved]
  - Flatulence [Not Recovered/Not Resolved]
  - Abdominal pain upper [Not Recovered/Not Resolved]
  - Eructation [Not Recovered/Not Resolved]

NARRATIVE: CASE EVENT DATE: 20200817
